FAERS Safety Report 4826730-5 (Version None)
Quarter: 2005Q4

REPORT INFORMATION
  Report Type: 
  Country: None (occurrence: None)
  Receive Date: 20051111
  Receipt Date: 20051111
  Transmission Date: 20060501
  Serious: Yes (Hospitalization)
  Sender: FDA-Public Use
  Company Number: None

PATIENT
  Age: 44 Year
  Sex: Male
  Weight: 111.8 kg

DRUGS (1)
  1. LISINOPRIL [Suspect]
     Indication: HYPERTENSION
     Dosage: 10MG   QD   PO
     Route: 048
     Dates: start: 20051011, end: 20051013

REACTIONS (4)
  - ANGIONEUROTIC OEDEMA [None]
  - DYSPHONIA [None]
  - DYSPNOEA [None]
  - SALIVARY GLAND DISORDER [None]
